FAERS Safety Report 25654889 (Version 1)
Quarter: 2025Q3

REPORT INFORMATION
  Report Type: Spontaneous
  Country: US (occurrence: US)
  Receive Date: 20250807
  Receipt Date: 20250807
  Transmission Date: 20251021
  Serious: No
  Sender: CALLIDITAS THERAPEUTICS AB
  Company Number: US-Calliditas-2025CAL01646

PATIENT
  Age: 26 Year
  Sex: Male

DRUGS (3)
  1. TARPEYO [Suspect]
     Active Substance: BUDESONIDE
     Indication: IgA nephropathy
     Route: 048
     Dates: start: 20241218
  2. LISINOPRIL [Concomitant]
     Active Substance: LISINOPRIL
  3. JARDIANCE [Concomitant]
     Active Substance: EMPAGLIFLOZIN

REACTIONS (3)
  - Product administration error [Unknown]
  - Illness [Recovering/Resolving]
  - Product dose omission issue [Recovered/Resolved]

NARRATIVE: CASE EVENT DATE: 20250604
